FAERS Safety Report 15727497 (Version 3)
Quarter: 2019Q1

REPORT INFORMATION
  Report Type: Report from Study
  Country: US (occurrence: US)
  Receive Date: 20181217
  Receipt Date: 20190327
  Transmission Date: 20190417
  Serious: No
  Sender: FDA-Public Use
  Company Number: PHEH2018US052344

PATIENT
  Sex: Female
  Weight: 70.29 kg

DRUGS (2)
  1. COSENTYX [Suspect]
     Active Substance: SECUKINUMAB
     Indication: IRIDOCYCLITIS
  2. COSENTYX [Suspect]
     Active Substance: SECUKINUMAB
     Indication: POLYARTHRITIS
     Dosage: 150 MG, QMO
     Route: 058
     Dates: start: 20181012

REACTIONS (7)
  - Joint stiffness [Unknown]
  - Inappropriate schedule of product administration [Unknown]
  - Musculoskeletal stiffness [Unknown]
  - Product use in unapproved indication [Unknown]
  - Headache [Unknown]
  - Arthropathy [Unknown]
  - Nasopharyngitis [Recovered/Resolved]
